FAERS Safety Report 20676200 (Version 3)
Quarter: 2022Q3

REPORT INFORMATION
  Report Type: Spontaneous
  Country: US (occurrence: US)
  Receive Date: 20220405
  Receipt Date: 20220801
  Transmission Date: 20221026
  Serious: No
  Sender: FDA-Public Use
  Company Number: US-PFIZER INC-202101418493

PATIENT
  Age: 84 Year
  Sex: Female

DRUGS (1)
  1. IBRANCE [Suspect]
     Active Substance: PALBOCICLIB
     Dosage: 125 MG
     Dates: start: 20180320

REACTIONS (7)
  - Product dose omission issue [Unknown]
  - Memory impairment [Unknown]
  - Oral pain [Unknown]
  - Dental caries [Unknown]
  - Ageusia [Unknown]
  - Anosmia [Unknown]
  - Fatigue [Unknown]
